FAERS Safety Report 25418032 (Version 2)
Quarter: 2025Q3

REPORT INFORMATION
  Report Type: Spontaneous
  Country: CA (occurrence: CA)
  Receive Date: 20250610
  Receipt Date: 20250804
  Transmission Date: 20251021
  Serious: Yes (Other)
  Sender: PFIZER
  Company Number: CA-PFIZER INC-202400313941

PATIENT
  Age: 2 Year
  Sex: Female
  Weight: 13.5 kg

DRUGS (6)
  1. ABRILADA [Suspect]
     Active Substance: ADALIMUMAB-AFZB
     Indication: Juvenile idiopathic arthritis
     Route: 058
     Dates: start: 20241030
  2. ABRILADA [Suspect]
     Active Substance: ADALIMUMAB-AFZB
     Route: 058
     Dates: start: 20241127
  3. ABRILADA [Suspect]
     Active Substance: ADALIMUMAB-AFZB
     Route: 058
     Dates: start: 20241211
  4. ABRILADA [Suspect]
     Active Substance: ADALIMUMAB-AFZB
     Route: 058
     Dates: start: 20241227
  5. ABRILADA [Suspect]
     Active Substance: ADALIMUMAB-AFZB
     Route: 058
     Dates: start: 2025
  6. METHOTREXATE [Concomitant]
     Active Substance: METHOTREXATE
     Dosage: 7500 UG, WEEKLY
     Dates: start: 202404

REACTIONS (7)
  - Uveitis [Not Recovered/Not Resolved]
  - Therapeutic response shortened [Not Recovered/Not Resolved]
  - Irritability [Recovering/Resolving]
  - Injection site pain [Recovered/Resolved]
  - Pyrexia [Recovered/Resolved]
  - Anxiety [Unknown]
  - Inappropriate schedule of product administration [Unknown]

NARRATIVE: CASE EVENT DATE: 20241127
